FAERS Safety Report 18049933 (Version 1)
Quarter: 2020Q3

REPORT INFORMATION
  Report Type: Spontaneous
  Country: US (occurrence: US)
  Receive Date: 20200721
  Receipt Date: 20200721
  Transmission Date: 20201103
  Serious: Yes (Death, Hospitalization, Other)
  Sender: FDA-Public Use
  Company Number: US-009507513-2007USA005630

PATIENT
  Age: 82 Year
  Sex: Male

DRUGS (2)
  1. KEYTRUDA [Suspect]
     Active Substance: PEMBROLIZUMAB
     Indication: NON-SMALL CELL LUNG CANCER STAGE IV
     Dosage: UNK
     Route: 042
     Dates: start: 20200504, end: 20200504
  2. KEYTRUDA [Suspect]
     Active Substance: PEMBROLIZUMAB
     Indication: NON-SMALL CELL LUNG CANCER METASTATIC

REACTIONS (6)
  - Hypovolaemic shock [Unknown]
  - Diarrhoea [Unknown]
  - Dehydration [Unknown]
  - Hypotension [Unknown]
  - Death [Fatal]
  - Local reaction [Unknown]

NARRATIVE: CASE EVENT DATE: 2020
